FAERS Safety Report 23505946 (Version 1)
Quarter: 2024Q1

REPORT INFORMATION
  Report Type: Spontaneous
  Country: US (occurrence: None)
  Receive Date: 20240208
  Receipt Date: 20240208
  Transmission Date: 20240410
  Serious: Yes (unspecified)
  Sender: FDA-Public Use
  Company Number: None

PATIENT
  Age: 29 Year
  Sex: Female
  Weight: 54 kg

DRUGS (8)
  1. EMGALITY [Suspect]
     Active Substance: GALCANEZUMAB-GNLM
     Indication: Migraine
     Dates: start: 20231101, end: 20231101
  2. SUMATRIPTAN [Concomitant]
     Active Substance: SUMATRIPTAN
  3. BOTOX [Concomitant]
     Active Substance: ONABOTULINUMTOXINA
  4. SPIRONOLACTONE [Concomitant]
     Active Substance: SPIRONOLACTONE
  5. TRETINOIN [Concomitant]
     Active Substance: TRETINOIN
  6. OMEPRAZOLE [Concomitant]
     Active Substance: OMEPRAZOLE
  7. CLINDAMYCIN [Concomitant]
     Active Substance: CLINDAMYCIN
  8. VITAMIN D [Concomitant]
     Active Substance: VITAMIN D NOS

REACTIONS (2)
  - Rectal haemorrhage [None]
  - Chronic gastritis [None]

NARRATIVE: CASE EVENT DATE: 20231201
